FAERS Safety Report 7950622-6 (Version None)
Quarter: 2011Q4

REPORT INFORMATION
  Report Type: 
  Country: None (occurrence: None)
  Receive Date: 20111130
  Receipt Date: 20111118
  Transmission Date: 20120403
  Serious: Yes (Other)
  Sender: FDA-Public Use
  Company Number: US-ROCHE-783784

PATIENT
  Sex: Male
  Weight: 61.29 kg

DRUGS (2)
  1. ACCUTANE [Suspect]
     Indication: ACNE
     Route: 048
     Dates: start: 19970101, end: 19970901
  2. ACCUTANE [Suspect]
     Route: 065
     Dates: start: 19980101, end: 19981201

REACTIONS (12)
  - STRESS [None]
  - LETHARGY [None]
  - FATIGUE [None]
  - PERIRECTAL ABSCESS [None]
  - ASCITES [None]
  - LIP DRY [None]
  - ANAL FISTULA [None]
  - INFLAMMATORY BOWEL DISEASE [None]
  - POLYP COLORECTAL [None]
  - CHEILITIS [None]
  - CROHN'S DISEASE [None]
  - PILONIDAL CYST [None]
